FAERS Safety Report 25166497 (Version 5)
Quarter: 2025Q3

REPORT INFORMATION
  Report Type: Report from Study
  Country: US (occurrence: US)
  Receive Date: 20250407
  Receipt Date: 20250930
  Transmission Date: 20251020
  Serious: Yes (Hospitalization)
  Sender: NOVITIUM PHARMA
  Company Number: US-NOVITIUMPHARMA-2025USNVP00845

PATIENT
  Age: 1 Year
  Sex: Male
  Weight: 24 kg

DRUGS (9)
  1. CARGLUMIC ACID [Suspect]
     Active Substance: CARGLUMIC ACID
     Indication: Propionic acidaemia
     Dosage: 1 TABLET VIA GASTRIC TUBE
  2. CARGLUMIC ACID [Suspect]
     Active Substance: CARGLUMIC ACID
     Dosage: 5 TABLETS 3 TIMES A DAY
     Dates: start: 20250323
  3. CARGLUMIC ACID [Suspect]
     Active Substance: CARGLUMIC ACID
     Dates: start: 20240409
  4. CARGLUMIC ACID [Suspect]
     Active Substance: CARGLUMIC ACID
  5. CARGLUMIC ACID [Suspect]
     Active Substance: CARGLUMIC ACID
  6. VITAMINS [Concomitant]
     Active Substance: VITAMINS
     Indication: Hypovitaminosis
  7. Keppra Solution [Concomitant]
     Indication: Seizure
  8. Keppra Solution [Concomitant]
  9. G-Levocarnitine [Concomitant]
     Indication: Propionic acidaemia

REACTIONS (4)
  - Rhinovirus infection [Not Recovered/Not Resolved]
  - Condition aggravated [Unknown]
  - Product dose omission issue [Unknown]
  - Vomiting [Not Recovered/Not Resolved]

NARRATIVE: CASE EVENT DATE: 20250415
